FAERS Safety Report 9574682 (Version 2)
Quarter: 2013Q4

REPORT INFORMATION
  Report Type: Report from Study
  Country: JP (occurrence: JP)
  Receive Date: 20131001
  Receipt Date: 20131004
  Transmission Date: 20140711
  Serious: Yes (Hospitalization, Other)
  Sender: FDA-Public Use
  Company Number: JP-TAKEDA-2013TJP000967

PATIENT
  Age: 66 Year
  Sex: Male
  Weight: 68 kg

DRUGS (5)
  1. ALOGLIPTIN [Suspect]
     Indication: TYPE 2 DIABETES MELLITUS
     Dosage: 25 MG, QD
     Route: 048
     Dates: start: 20120425
  2. EXFORGE [Concomitant]
     Route: 048
  3. DIOVAN [Concomitant]
     Route: 048
  4. PROTECADIN [Concomitant]
     Route: 048
  5. NEXIUM                             /01479302/ [Concomitant]
     Route: 048

REACTIONS (1)
  - Gastric cancer [Recovered/Resolved]
